FAERS Safety Report 22708750 (Version 10)
Quarter: 2023Q4

REPORT INFORMATION
  Report Type: Spontaneous
  Country: US (occurrence: US)
  Receive Date: 20230716
  Receipt Date: 20231208
  Transmission Date: 20240110
  Serious: No
  Sender: FDA-Public Use
  Company Number: US-ELI_LILLY_AND_COMPANY-US202307008257

PATIENT
  Age: 57 Year
  Sex: Female

DRUGS (9)
  1. ADCIRCA [Suspect]
     Active Substance: TADALAFIL
     Indication: Pulmonary arterial hypertension
     Dosage: 40 MG, DAILY
     Route: 048
     Dates: start: 202306
  2. UPTRAVI [Suspect]
     Active Substance: SELEXIPAG
     Indication: Product used for unknown indication
     Dosage: 200 UG, BID
     Route: 048
  3. UPTRAVI [Suspect]
     Active Substance: SELEXIPAG
     Dosage: 400 UG, BID
     Route: 048
  4. UPTRAVI [Suspect]
     Active Substance: SELEXIPAG
     Dosage: 600 UG, BID
     Route: 048
  5. UPTRAVI [Suspect]
     Active Substance: SELEXIPAG
     Dosage: 400 UG, BID
     Route: 048
  6. UPTRAVI [Suspect]
     Active Substance: SELEXIPAG
     Dosage: 400 UG, EACH MORNING
     Route: 048
  7. UPTRAVI [Suspect]
     Active Substance: SELEXIPAG
     Dosage: 600 UG, EACH EVENING
     Route: 048
  8. UPTRAVI [Suspect]
     Active Substance: SELEXIPAG
     Dosage: 600 UG, BID
     Route: 048
  9. PANTOPRAZOLE [Concomitant]
     Active Substance: PANTOPRAZOLE
     Indication: Product used for unknown indication

REACTIONS (31)
  - Joint swelling [Unknown]
  - Oedema [Not Recovered/Not Resolved]
  - Decreased appetite [Unknown]
  - Abdominal distension [Not Recovered/Not Resolved]
  - Tremor [Unknown]
  - Erythema [Not Recovered/Not Resolved]
  - Fall [Unknown]
  - Joint dislocation [Recovered/Resolved]
  - Contusion [Unknown]
  - Inflammation [Unknown]
  - Weight increased [Unknown]
  - Gait disturbance [Unknown]
  - Flatulence [Unknown]
  - Diarrhoea [Not Recovered/Not Resolved]
  - Pain [Recovering/Resolving]
  - Hypoaesthesia [Not Recovered/Not Resolved]
  - Gastritis [Unknown]
  - Paraesthesia [Unknown]
  - Fatigue [Unknown]
  - Dizziness [Unknown]
  - Headache [Not Recovered/Not Resolved]
  - Peripheral swelling [Unknown]
  - Nausea [Not Recovered/Not Resolved]
  - Flushing [Not Recovered/Not Resolved]
  - Swelling face [Not Recovered/Not Resolved]
  - Abdominal pain [Unknown]
  - Malaise [Unknown]
  - Pain in extremity [Not Recovered/Not Resolved]
  - Dyspnoea [Unknown]
  - Asthenia [Unknown]
  - Rash [Not Recovered/Not Resolved]

NARRATIVE: CASE EVENT DATE: 20230601
